FAERS Safety Report 11838680 (Version 1)
Quarter: 2015Q4

REPORT INFORMATION
  Report Type: Spontaneous
  Country: US (occurrence: US)
  Receive Date: 20151215
  Receipt Date: 20151215
  Transmission Date: 20160305
  Serious: No
  Sender: FDA-Public Use
  Company Number: US-SA-2015SA085654

PATIENT

DRUGS (2)
  1. TAXOTERE [Suspect]
     Active Substance: DOCETAXEL
     Dosage: FORM: INFUSION
     Route: 065
     Dates: start: 2014, end: 2014
  2. TAXOTERE [Suspect]
     Active Substance: DOCETAXEL
     Dosage: FORM: INFUSION
     Route: 065

REACTIONS (4)
  - Pain in extremity [Unknown]
  - Chest pain [Unknown]
  - Ear discomfort [Unknown]
  - Facial pain [Unknown]
